FAERS Safety Report 21197148 (Version 3)
Quarter: 2022Q3

REPORT INFORMATION
  Report Type: Spontaneous
  Country: US (occurrence: None)
  Receive Date: 20220810
  Receipt Date: 20220921
  Transmission Date: 20221027
  Serious: No
  Sender: FDA-Public Use
  Company Number: 2022A265738

PATIENT
  Age: 60 Year
  Sex: Male
  Weight: 77.3 kg

DRUGS (1)
  1. BYDUREON BCISE [Suspect]
     Active Substance: EXENATIDE
     Indication: Blood glucose abnormal
     Route: 058

REACTIONS (4)
  - Injection site bruising [Unknown]
  - Gait disturbance [Not Recovered/Not Resolved]
  - Drug delivery system issue [Unknown]
  - Device leakage [Unknown]
